FAERS Safety Report 8310732-0 (Version None)
Quarter: 2012Q2

REPORT INFORMATION
  Report Type: 
  Country: None (occurrence: None)
  Receive Date: 20120425
  Receipt Date: 20120423
  Transmission Date: 20120825
  Serious: Yes (Other)
  Sender: FDA-Public Use
  Company Number: DE-ROCHE-1062465

PATIENT
  Sex: Female

DRUGS (4)
  1. OXALIPLATIN [Suspect]
     Indication: COLON CANCER METASTATIC
  2. AVASTIN [Suspect]
     Indication: COLON CANCER METASTATIC
  3. FLUOROURACIL [Suspect]
     Indication: COLON CANCER METASTATIC
  4. LEUCOVORIN CALCIUM [Suspect]
     Indication: COLON CANCER METASTATIC

REACTIONS (2)
  - THROMBOCYTOPENIA [None]
  - HAEMOLYTIC ANAEMIA [None]
